FAERS Safety Report 9168051 (Version 1)
Quarter: 2013Q1

REPORT INFORMATION
  Report Type: Spontaneous
  Country: CN (occurrence: None)
  Receive Date: 20130307
  Receipt Date: 20130307
  Transmission Date: 20140127
  Serious: Yes (Hospitalization)
  Sender: FDA-Public Use
  Company Number: VAL_01446_2013

PATIENT
  Sex: Male
  Weight: 80 kg

DRUGS (1)
  1. LOTENSIN (00909102) (LOTENSIN-BENAZEPRIL HYDROCHLORIDE) (NOT SPECIFIED) [Suspect]
     Route: 048
     Dates: start: 20100125, end: 20100218

REACTIONS (1)
  - Cough [None]
